FAERS Safety Report 6703055-4 (Version None)
Quarter: 2010Q2

REPORT INFORMATION
  Report Type: 
  Country: None (occurrence: None)
  Receive Date: 20100428
  Receipt Date: 20100419
  Transmission Date: 20101027
  Serious: Yes (Other)
  Sender: FDA-Public Use
  Company Number: CIP10000966

PATIENT
  Age: 68 Year
  Sex: Female

DRUGS (6)
  1. NITROFURANTOIN        (NITROFURANTOIN, MACROCRYSTALS) [Suspect]
     Indication: PROPHYLAXIS
     Dosage: 50 MG NIGHTLY, ORAL
     Route: 048
     Dates: start: 20061001, end: 20070401
  2. NITROFURANTOIN        (NITROFURANTOIN, MACROCRYSTALS) [Suspect]
     Indication: URINARY TRACT INFECTION
     Dosage: 50 MG NIGHTLY, ORAL
     Route: 048
     Dates: start: 20061001, end: 20070401
  3. ADCAL D3 (CALCIUM CARBONATE, COLECALCIFEROL [Concomitant]
  4. DOXAZOSIN MESYLATE [Concomitant]
  5. ALENDRONATE SODIUM [Concomitant]
  6. ASPIRIN [Concomitant]

REACTIONS (6)
  - BLOOD PRESSURE INCREASED [None]
  - GRANULOMA [None]
  - HAEMOGLOBIN DECREASED [None]
  - LETHARGY [None]
  - RENAL FAILURE ACUTE [None]
  - TUBULOINTERSTITIAL NEPHRITIS [None]
